FAERS Safety Report 8987474 (Version 1)
Quarter: 2012Q4

REPORT INFORMATION
  Report Type: 
  Country: LK (occurrence: LK)
  Receive Date: 20121227
  Receipt Date: 20121227
  Transmission Date: 20130627
  Serious: Yes (Hospitalization, Other)
  Sender: FDA-Public Use
  Company Number: LK-PFIZER INC-2012324740

PATIENT
  Age: 42 Year
  Sex: Male

DRUGS (1)
  1. ADRENALINE [Suspect]
     Dosage: UNK

REACTIONS (18)
  - Accidental exposure to product [Unknown]
  - Toxicity to various agents [Unknown]
  - Loss of consciousness [Recovered/Resolved]
  - Syncope [Recovered/Resolved]
  - Chest pain [Unknown]
  - Palpitations [Unknown]
  - Headache [Unknown]
  - Electrocardiogram T wave inversion [Recovered/Resolved]
  - Cardiac enzymes increased [Recovered/Resolved]
  - Muscular weakness [Not Recovered/Not Resolved]
  - Electromyogram abnormal [Recovered/Resolved]
  - Nerve conduction studies abnormal [Unknown]
  - Asthenia [Unknown]
  - Hypotonia [Unknown]
  - Tremor [Unknown]
  - Dyspnoea [Not Recovered/Not Resolved]
  - Fatigue [Unknown]
  - Walking aid user [Not Recovered/Not Resolved]
